FAERS Safety Report 6540481-0 (Version None)
Quarter: 2010Q1

REPORT INFORMATION
  Report Type: 
  Country: None (occurrence: None)
  Receive Date: 20100118
  Receipt Date: 20100113
  Transmission Date: 20100710
  Serious: Yes (Hospitalization, Other)
  Sender: FDA-Public Use
  Company Number: US-ASTRAZENECA-2007UW23854

PATIENT
  Age: 15247 Day
  Sex: Male
  Weight: 161 kg

DRUGS (7)
  1. SEROQUEL [Suspect]
     Indication: AFFECTIVE DISORDER
     Dosage: 300 MG (TWO TIMES A DAY, AS AND WHEN REQUIRED)
     Route: 048
     Dates: start: 20050810
  2. WELLBUTRIN [Concomitant]
     Dates: start: 20050829
  3. TOPAMAX [Concomitant]
     Dosage: 50 -100 MG
     Dates: start: 20051005
  4. LIPITOR [Concomitant]
     Dosage: 10-40 MG
     Route: 048
     Dates: start: 20051005
  5. TRICOR [Concomitant]
     Route: 048
     Dates: start: 20060616
  6. LISINOPRIL [Concomitant]
     Dates: start: 20060724
  7. METFORMIN HCL [Concomitant]
     Dates: start: 20060616

REACTIONS (4)
  - CHRONIC OBSTRUCTIVE PULMONARY DISEASE [None]
  - PANIC ATTACK [None]
  - SUICIDAL IDEATION [None]
  - SUICIDE ATTEMPT [None]
